FAERS Safety Report 13825904 (Version 1)
Quarter: 2017Q3

REPORT INFORMATION
  Report Type: Spontaneous
  Country: GB (occurrence: GB)
  Receive Date: 20170802
  Receipt Date: 20170802
  Transmission Date: 20171127
  Serious: Yes (Disabling, Other)
  Sender: FDA-Public Use
  Company Number: GB-MYLANLABS-2017M1045134

PATIENT

DRUGS (6)
  1. MAGNESIUM [Concomitant]
     Active Substance: MAGNESIUM
  2. N-ACETYLCYSTEINE [Concomitant]
     Active Substance: ACETYLCYSTEINE
  3. GLUTATHIONE [Concomitant]
     Active Substance: GLUTATHIONE
  4. ACETYL-L-CARNITINE [Concomitant]
  5. RIBOSE [Concomitant]
     Active Substance: DIETARY SUPPLEMENT
  6. CIPROFLOXACIN. [Suspect]
     Active Substance: CIPROFLOXACIN
     Indication: INFECTION
     Route: 048
     Dates: start: 20170626, end: 20170627

REACTIONS (8)
  - Muscle tightness [Unknown]
  - Diarrhoea [Recovered/Resolved]
  - Discomfort [Not Recovered/Not Resolved]
  - Feeling abnormal [Recovering/Resolving]
  - Arthralgia [Not Recovered/Not Resolved]
  - Pain in extremity [Not Recovered/Not Resolved]
  - Gait disturbance [Not Recovered/Not Resolved]
  - Paraesthesia [Not Recovered/Not Resolved]

NARRATIVE: CASE EVENT DATE: 20170627
